FAERS Safety Report 15049886 (Version 4)
Quarter: 2022Q1

REPORT INFORMATION
  Report Type: Other
  Country: IT (occurrence: IT)
  Receive Date: 20180622
  Receipt Date: 20220211
  Transmission Date: 20220423
  Serious: Yes (Other)
  Sender: FDA-Public Use
  Company Number: IT-PFM-2018-06267

PATIENT
  Age: 8 Month

DRUGS (8)
  1. RITUXIMAB [Suspect]
     Active Substance: RITUXIMAB
     Indication: Anti-platelet antibody
     Route: 065
  2. RITUXIMAB [Suspect]
     Active Substance: RITUXIMAB
     Indication: Anti-complement antibody
  3. ECULIZUMAB [Suspect]
     Active Substance: ECULIZUMAB
     Indication: Atypical haemolytic uraemic syndrome
     Route: 065
  4. BUSULFAN [Suspect]
     Active Substance: BUSULFAN
     Indication: Allogenic stem cell transplantation
     Dosage: 80 MG/M2, QID (4/DAY) (TARGETED AUC 85 MGX H/L)
     Route: 042
  5. BUSULFAN [Suspect]
     Active Substance: BUSULFAN
     Dosage: 375 MG/M2, QD?CONCENTRATE FOR SOLUTION FOR INFUSION
     Route: 042
  6. DEFIBROTIDE [Suspect]
     Active Substance: DEFIBROTIDE (BOVINE)
     Indication: Prophylaxis
     Route: 065
  7. DEFIBROTIDE [Suspect]
     Active Substance: DEFIBROTIDE (BOVINE)
     Indication: Venoocclusive disease
     Route: 065
  8. SOLIRIS [Suspect]
     Active Substance: ECULIZUMAB
     Indication: Atypical haemolytic uraemic syndrome
     Dosage: 300 MG/ WEEKLY DOSE, STARTED ON DAY +40
     Route: 065

REACTIONS (9)
  - Haemorrhage [Recovered/Resolved]
  - Venoocclusive liver disease [Unknown]
  - Atypical haemolytic uraemic syndrome [Recovered/Resolved]
  - Bone marrow failure [Recovered/Resolved]
  - Off label use [Unknown]
  - Pulmonary oedema [Unknown]
  - Product administration error [Unknown]
  - Anaemia [Recovered/Resolved]
  - Thrombocytopenia [Recovered/Resolved]
